FAERS Safety Report 12432133 (Version 1)
Quarter: 2016Q2

REPORT INFORMATION
  Report Type: Spontaneous
  Country: SI (occurrence: SI)
  Receive Date: 20160603
  Receipt Date: 20160603
  Transmission Date: 20160815
  Serious: Yes (Death, Hospitalization, Other)
  Sender: FDA-Public Use
  Company Number: SI-CIPLA LTD.-2016SI05989

PATIENT

DRUGS (1)
  1. GEMCITABINE [Suspect]
     Active Substance: GEMCITABINE\GEMCITABINE HYDROCHLORIDE
     Indication: PANCREATIC CARCINOMA METASTATIC
     Dosage: 1000 MG/M2, WEEKLY
     Route: 065
     Dates: start: 20090316

REACTIONS (3)
  - Dry gangrene [Recovered/Resolved]
  - Disease progression [Fatal]
  - Raynaud^s phenomenon [Unknown]
